FAERS Safety Report 11811308 (Version 4)
Quarter: 2016Q3

REPORT INFORMATION
  Report Type: Report from Study
  Country: US (occurrence: US)
  Receive Date: 20151208
  Receipt Date: 20160728
  Transmission Date: 20161109
  Serious: Yes (Hospitalization, Other)
  Sender: FDA-Public Use
  Company Number: PHEH2015US025119

PATIENT
  Sex: Male
  Weight: 83 kg

DRUGS (2)
  1. AFINITOR [Suspect]
     Active Substance: EVEROLIMUS
     Indication: RENAL CELL CARCINOMA
     Dosage: 10 MG, QD
     Route: 065
     Dates: start: 201505, end: 201508
  2. INLYTA [Concomitant]
     Active Substance: AXITINIB
     Indication: PRODUCT USED FOR UNKNOWN INDICATION
     Dosage: 5 MG, BID
     Route: 065
     Dates: start: 20150508

REACTIONS (27)
  - Peripheral swelling [Unknown]
  - Atelectasis [Unknown]
  - Lymph node calcification [Unknown]
  - Weight decreased [Unknown]
  - Anxiety [Unknown]
  - Pleural effusion [Recovered/Resolved]
  - Dyspnoea [Recovering/Resolving]
  - Pyrexia [Unknown]
  - Cardiac failure congestive [Unknown]
  - Rash pruritic [Recovering/Resolving]
  - Oedema peripheral [Unknown]
  - Blood pressure decreased [Unknown]
  - Cardiomegaly [Unknown]
  - Fatigue [Unknown]
  - Cardiac disorder [Unknown]
  - Metastases to abdominal cavity [Unknown]
  - Heart rate decreased [Unknown]
  - Asthenia [Unknown]
  - Oedema [Unknown]
  - Anaemia [Unknown]
  - Nervousness [Unknown]
  - Pulmonary mass [Unknown]
  - Diarrhoea [Unknown]
  - Gingival recession [Unknown]
  - Hyperhidrosis [Unknown]
  - Epistaxis [Unknown]
  - Dyspnoea exertional [Recovering/Resolving]
